FAERS Safety Report 20641509 (Version 2)
Quarter: 2022Q1

REPORT INFORMATION
  Report Type: Spontaneous
  Country: US (occurrence: US)
  Receive Date: 20220328
  Receipt Date: 20220331
  Transmission Date: 20220423
  Serious: Yes (Other)
  Sender: FDA-Public Use
  Company Number: US-BIOGEN-2022BI01108288

PATIENT
  Sex: Female

DRUGS (1)
  1. TECFIDERA [Suspect]
     Active Substance: DIMETHYL FUMARATE
     Indication: Multiple sclerosis
     Route: 065
     Dates: start: 20150227

REACTIONS (2)
  - Goitre [Not Recovered/Not Resolved]
  - Head and neck procedural complication [Not Recovered/Not Resolved]

NARRATIVE: CASE EVENT DATE: 20220101
